FAERS Safety Report 26087631 (Version 1)
Quarter: 2025Q4

REPORT INFORMATION
  Report Type: Spontaneous
  Country: AU (occurrence: AU)
  Receive Date: 20251125
  Receipt Date: 20251125
  Transmission Date: 20260119
  Serious: Yes (Other)
  Sender: ROCHE
  Company Number: AU-ROCHE-10000438936

PATIENT
  Age: 69 Year
  Sex: Female

DRUGS (1)
  1. TECENTRIQ [Suspect]
     Active Substance: ATEZOLIZUMAB
     Indication: Small cell lung cancer extensive stage
     Dosage: NEXT INFUSION SCHEDULED ON MONDAY 24-NOV-2025.
     Route: 065

REACTIONS (2)
  - Neuropathy peripheral [Unknown]
  - Cytokine storm [Unknown]
